FAERS Safety Report 17677652 (Version 2)
Quarter: 2020Q3

REPORT INFORMATION
  Report Type: Spontaneous
  Country: US (occurrence: US)
  Receive Date: 20200416
  Receipt Date: 20200916
  Transmission Date: 20201102
  Serious: Yes (Hospitalization, Other)
  Sender: FDA-Public Use
  Company Number: US-GILEAD-2020-0459260

PATIENT
  Age: 51 Year
  Sex: Male
  Weight: 157 kg

DRUGS (3)
  1. OMEPRAZOLE. [Concomitant]
     Active Substance: OMEPRAZOLE
  2. ZOFRAN [Concomitant]
     Active Substance: ONDANSETRON HYDROCHLORIDE
  3. VIREAD [Suspect]
     Active Substance: TENOFOVIR DISOPROXIL FUMARATE
     Indication: HEPATITIS B
     Dosage: UNK
     Route: 048
     Dates: start: 2012

REACTIONS (27)
  - Bedridden [Unknown]
  - Body height abnormal [Unknown]
  - Compression fracture [Not Recovered/Not Resolved]
  - Emotional distress [Not Recovered/Not Resolved]
  - Anxiety [Not Recovered/Not Resolved]
  - Tooth fracture [Not Recovered/Not Resolved]
  - Decreased interest [Unknown]
  - Pancreatitis [Unknown]
  - Economic problem [Not Recovered/Not Resolved]
  - Swelling [Unknown]
  - Vomiting [Unknown]
  - Fracture [Unknown]
  - Chronic kidney disease [Not Recovered/Not Resolved]
  - Anhedonia [Not Recovered/Not Resolved]
  - Fall [Unknown]
  - Colonoscopy [Unknown]
  - Abdominal pain [Unknown]
  - Arthralgia [Unknown]
  - Tooth disorder [Unknown]
  - Pain [Not Recovered/Not Resolved]
  - Depression [Not Recovered/Not Resolved]
  - Loss of personal independence in daily activities [Unknown]
  - Osteoporosis [Not Recovered/Not Resolved]
  - Bone pain [Unknown]
  - Depressed mood [Unknown]
  - Wrist fracture [Not Recovered/Not Resolved]
  - Hypoaesthesia [Unknown]

NARRATIVE: CASE EVENT DATE: 2012
